FAERS Safety Report 18991893 (Version 1)
Quarter: 2021Q1

REPORT INFORMATION
  Report Type: Spontaneous
  Country: US (occurrence: US)
  Receive Date: 20210309
  Receipt Date: 20210309
  Transmission Date: 20210420
  Serious: Yes (Other)
  Sender: FDA-Public Use
  Company Number: None

PATIENT
  Age: 26 Year
  Sex: Male
  Weight: 62.1 kg

DRUGS (2)
  1. DEXTROAMPHET SACCHARAT, AMPHET ASPARTATE, DEXTROAMPHET SULFATE AND AMPHET SULFAT [Suspect]
     Active Substance: AMPHETAMINE ASPARTATE\AMPHETAMINE SULFATE\DEXTROAMPHETAMINE SACCHARATE\DEXTROAMPHETAMINE SULFATE
     Dosage: ?          QUANTITY:30 TABLET(S);?
     Route: 048
     Dates: start: 20210211, end: 20210306
  2. ADDERALL POD [Concomitant]

REACTIONS (9)
  - Impulsive behaviour [None]
  - Irritability [None]
  - Depressed mood [None]
  - Headache [None]
  - Diarrhoea [None]
  - Disturbance in attention [None]
  - Product substitution issue [None]
  - Psychomotor hyperactivity [None]
  - Nausea [None]

NARRATIVE: CASE EVENT DATE: 20210211
